FAERS Safety Report 24683916 (Version 1)
Quarter: 2024Q4

REPORT INFORMATION
  Report Type: Spontaneous
  Country: US (occurrence: US)
  Receive Date: 20241202
  Receipt Date: 20241202
  Transmission Date: 20250115
  Serious: No
  Sender: AMGEN
  Company Number: US-AMGEN-USASP2024235468

PATIENT

DRUGS (1)
  1. PREDNISONE [Suspect]
     Active Substance: PREDNISONE
     Indication: Lyme disease
     Dosage: UNK
     Route: 065

REACTIONS (6)
  - Haematocrit abnormal [Unknown]
  - White blood cell disorder [Unknown]
  - Neutrophil count abnormal [Unknown]
  - Monocyte count abnormal [Unknown]
  - Platelet count abnormal [Unknown]
  - Lymphocyte count abnormal [Unknown]
